FAERS Safety Report 25416023 (Version 1)
Quarter: 2025Q2

REPORT INFORMATION
  Report Type: Spontaneous
  Country: US (occurrence: US)
  Receive Date: 20250610
  Receipt Date: 20250610
  Transmission Date: 20250717
  Serious: Yes (Hospitalization, Other)
  Sender: SANOFI AVENTIS
  Company Number: US-SA-2025SA163361

PATIENT
  Sex: Female
  Weight: 69.55 kg

DRUGS (16)
  1. DUPIXENT [Suspect]
     Active Substance: DUPILUMAB
     Indication: Nasal polyps
     Dosage: 300 MG, QOW
     Route: 058
  2. QUERCETIN COMPLEX [ASCORBIC ACID;BIOFLAVONOIDS NOS;HESPERIDIN;QUERCETI [Concomitant]
  3. ASPIRIN [Concomitant]
     Active Substance: ASPIRIN
  4. PSEUDOEPHEDRINE HYDROCHLORIDE [Concomitant]
     Active Substance: PSEUDOEPHEDRINE HYDROCHLORIDE
  5. FLUCONAZOLE [Concomitant]
     Active Substance: FLUCONAZOLE
  6. DOXYCYCLINE HYCLATE [Concomitant]
     Active Substance: DOXYCYCLINE HYCLATE
  7. FISH OIL [Concomitant]
     Active Substance: FISH OIL
  8. VITAMINS [Concomitant]
     Active Substance: VITAMINS
  9. ESTRADIOL [Concomitant]
     Active Substance: ESTRADIOL
     Dosage: QW
  10. MONTELUKAST SODIUM [Concomitant]
     Active Substance: MONTELUKAST SODIUM
  11. LIOTHYRONINE SODIUM [Concomitant]
     Active Substance: LIOTHYRONINE SODIUM
  12. LEVOTHYROXINE SODIUM [Concomitant]
     Active Substance: LEVOTHYROXINE SODIUM
  13. ALBUTEROL SULFATE [Concomitant]
     Active Substance: ALBUTEROL SULFATE
  14. WIXELA INHUB [Concomitant]
     Active Substance: FLUTICASONE PROPIONATE\SALMETEROL XINAFOATE
  15. PRISTIQ EXTENDED-RELEASE [Concomitant]
     Active Substance: DESVENLAFAXINE SUCCINATE
  16. COLESEVELAM HYDROCHLORIDE [Concomitant]
     Active Substance: COLESEVELAM HYDROCHLORIDE

REACTIONS (4)
  - Breast cancer stage III [Not Recovered/Not Resolved]
  - Metastases to lymph nodes [Not Recovered/Not Resolved]
  - Lymphatic fistula [Not Recovered/Not Resolved]
  - Fungal infection [Unknown]
